FAERS Safety Report 6595954-1 (Version None)
Quarter: 2010Q1

REPORT INFORMATION
  Report Type: 
  Country: None (occurrence: None)
  Receive Date: 20100223
  Receipt Date: 20100210
  Transmission Date: 20100710
  Serious: Yes (Other)
  Sender: FDA-Public Use
  Company Number: PHHY2010JP08196

PATIENT

DRUGS (3)
  1. CYCLOSPORINE [Suspect]
     Route: 064
  2. AZATHIOPRINE [Concomitant]
     Route: 064
  3. PREDNISOLONE [Concomitant]
     Route: 064

REACTIONS (3)
  - DRUG EXPOSURE DURING PREGNANCY [None]
  - MATERNAL DRUGS AFFECTING FOETUS [None]
  - NEONATAL ASPHYXIA [None]
